FAERS Safety Report 9040497 (Version 1)
Quarter: 2013Q1

REPORT INFORMATION
  Report Type: Report from Study
  Country: US (occurrence: US)
  Receive Date: 20130129
  Receipt Date: 20130129
  Transmission Date: 20140127
  Serious: No
  Sender: FDA-Public Use
  Company Number: US-ABBOTT-12P-163-0892469-00

PATIENT
  Age: 60 Year
  Sex: Female

DRUGS (11)
  1. HUMIRA 40 MG/0.8 ML PEN [Suspect]
     Indication: RHEUMATOID ARTHRITIS
     Dosage: 160 MG LOADING DOSE
     Dates: start: 20111229
  2. METHOTREXATE [Concomitant]
     Indication: PRODUCT USED FOR UNKNOWN INDICATION
  3. METOPROLOL [Concomitant]
     Indication: BLOOD PRESSURE
  4. TRIAMTERENE AND HYDROCHLOROTHIAZIDE [Concomitant]
     Indication: BLOOD PRESSURE
     Dosage: 75/50
  5. ACYCLOVIR [Concomitant]
     Indication: HERPES ZOSTER
  6. OMEPRAZOLE [Concomitant]
     Indication: GASTROOESOPHAGEAL REFLUX DISEASE
  7. CENTRUM [Concomitant]
     Indication: PRODUCT USED FOR UNKNOWN INDICATION
     Dosage: MULTIVITAMIN
  8. ALLOPURINOL [Concomitant]
     Indication: BLOOD URIC ACID INCREASED
  9. SIMVASTATIN [Concomitant]
     Indication: BLOOD CHOLESTEROL
  10. CALCIUM [Concomitant]
     Indication: SUPPLEMENTATION THERAPY
  11. FOLIC ACID [Concomitant]
     Indication: PRODUCT USED FOR UNKNOWN INDICATION

REACTIONS (1)
  - Pruritus [Not Recovered/Not Resolved]
